FAERS Safety Report 7914571-1 (Version None)
Quarter: 2011Q4

REPORT INFORMATION
  Report Type: 
  Country: None (occurrence: None)
  Receive Date: 20111115
  Receipt Date: 20111104
  Transmission Date: 20120403
  Serious: Yes (Hospitalization)
  Sender: FDA-Public Use
  Company Number: PHHO2011JP18021

PATIENT
  Sex: Female
  Weight: 45 kg

DRUGS (12)
  1. ETHYL LOFLAZEPATE [Concomitant]
     Indication: DEPRESSION
     Dosage: 5 MG, UNK
     Route: 048
     Dates: start: 20090530
  2. LOXOPROFEN SODIUM [Concomitant]
     Indication: BACK PAIN
     Dosage: UNK
     Route: 048
     Dates: start: 20100607
  3. ASPIRIN [Concomitant]
     Indication: CAROTID ARTERY STENOSIS
     Dosage: 100 MG, UNK
     Route: 048
     Dates: start: 20111017
  4. ASPARA-CA [Concomitant]
     Indication: OSTEOPOROSIS
     Dosage: 1200 MG, UNK
     Route: 048
     Dates: start: 20081203
  5. TSUMURA [Concomitant]
     Indication: FATIGUE
     Dosage: 7.5 MG, UNK
     Route: 048
     Dates: start: 20080528
  6. LETROZOLE [Suspect]
     Indication: BREAST CANCER
     Dosage: 1 DF, UNK
     Route: 048
     Dates: start: 20071112
  7. LIVALO [Concomitant]
     Indication: DYSLIPIDAEMIA
     Dosage: 2 MG, UNK
     Route: 048
     Dates: start: 20110606
  8. MEDEPOLIN [Concomitant]
     Indication: DEPRESSION
     Dosage: 0.4 MG, UNK
     Route: 048
     Dates: start: 20100319
  9. ALFACALCIDOL [Concomitant]
     Indication: OSTEOPOROSIS
     Dosage: 0.5 UG, UNK
     Route: 048
     Dates: start: 20081203
  10. PROTECADIN [Concomitant]
     Indication: GASTRIC ULCER
     Dosage: 10 MG, UNK
     Route: 048
     Dates: start: 20110201
  11. TEPRENONE [Concomitant]
     Indication: GASTRITIS PROPHYLAXIS
     Dosage: UNK
     Route: 048
     Dates: start: 20101004
  12. OPALMON [Concomitant]
     Indication: BACK PAIN
     Dosage: 30 UG, UNK
     Route: 048
     Dates: start: 20100607, end: 20111017

REACTIONS (1)
  - LUMBAR SPINAL STENOSIS [None]
